FAERS Safety Report 19594603 (Version 1)
Quarter: 2021Q3

REPORT INFORMATION
  Report Type: Report from Study
  Country: None (occurrence: US)
  Receive Date: 20210722
  Receipt Date: 20210722
  Transmission Date: 20211014
  Serious: Yes (Hospitalization)
  Sender: FDA-Public Use
  Company Number: US-ABBVIE-21K-163-4001619-00

PATIENT
  Sex: Male
  Weight: 140.74 kg

DRUGS (12)
  1. LISINOPRIL. [Concomitant]
     Active Substance: LISINOPRIL
     Indication: HYPERTENSION
  2. LEVOTHYROXINE. [Suspect]
     Active Substance: LEVOTHYROXINE
     Indication: BASEDOW^S DISEASE
     Dosage: SEPARATE SCRIPTS 200 + 50
     Route: 048
     Dates: start: 201710
  3. VITAMIN B12 [Concomitant]
     Active Substance: CYANOCOBALAMIN
     Indication: SUPPLEMENTATION THERAPY
  4. COVID?19 VACCINE [Concomitant]
     Dosage: MODERNA MANUFACTURER
  5. LEVOTHYROXINE. [Suspect]
     Active Substance: LEVOTHYROXINE
     Indication: HYPOTHYROIDISM
     Route: 048
     Dates: start: 201912
  6. ATORVASTATIN CALCIUM. [Concomitant]
     Active Substance: ATORVASTATIN CALCIUM
     Indication: BLOOD CHOLESTEROL INCREASED
  7. SYNTHROID [Suspect]
     Active Substance: LEVOTHYROXINE SODIUM
     Indication: HYPOTHYROIDISM
     Dosage: CHANGED BACK TO GENERIC
     Route: 048
     Dates: end: 2019
  8. CYCLOBENZAPRINE. [Concomitant]
     Active Substance: CYCLOBENZAPRINE
     Indication: PRODUCT USED FOR UNKNOWN INDICATION
  9. COVID?19 VACCINE [Concomitant]
     Indication: COVID-19 IMMUNISATION
     Dosage: MODERNA MANUFACTURER
  10. SYNTHROID [Suspect]
     Active Substance: LEVOTHYROXINE SODIUM
     Indication: BASEDOW^S DISEASE
     Dosage: DOSE DECREASED
     Route: 048
  11. METFORMIN [Concomitant]
     Active Substance: METFORMIN HYDROCHLORIDE
     Indication: DIABETES MELLITUS
  12. AMLODIPINE [Concomitant]
     Active Substance: AMLODIPINE BESYLATE
     Indication: PRODUCT USED FOR UNKNOWN INDICATION

REACTIONS (6)
  - Weight increased [Recovered/Resolved]
  - Oxygen saturation decreased [Unknown]
  - Drug effect less than expected [Not Recovered/Not Resolved]
  - Weight decreased [Recovered/Resolved]
  - COVID-19 [Recovered/Resolved]
  - Tremor [Recovered/Resolved]

NARRATIVE: CASE EVENT DATE: 2013
